FAERS Safety Report 5872059-6 (Version None)
Quarter: 2008Q3

REPORT INFORMATION
  Report Type: 
  Country: None (occurrence: None)
  Receive Date: 20080905
  Receipt Date: 20080821
  Transmission Date: 20090109
  Serious: Yes (Hospitalization)
  Sender: FDA-Public Use
  Company Number: GB-GENENTECH-267117

PATIENT
  Sex: Female

DRUGS (4)
  1. BEVACIZUMAB [Suspect]
     Indication: GASTRIC CANCER
     Dosage: 400 MG, UNK
     Route: 042
     Dates: start: 20080327
  2. CAPECITABINE [Suspect]
     Indication: GASTRIC CANCER
     Dosage: 1150 MG, UNK
     Route: 048
     Dates: start: 20080327
  3. EPIRUBICIN [Suspect]
     Indication: GASTRIC CANCER
     Dosage: 80 MG, UNK
     Route: 042
     Dates: start: 20080327
  4. CISPLATIN [Suspect]
     Indication: GASTRIC CANCER
     Dosage: 96 MG, UNK
     Route: 042
     Dates: start: 20080327

REACTIONS (2)
  - ABDOMINAL DISTENSION [None]
  - NAUSEA [None]
